FAERS Safety Report 14587148 (Version 2)
Quarter: 2018Q2

REPORT INFORMATION
  Report Type: Spontaneous
  Country: AU (occurrence: AU)
  Receive Date: 20180301
  Receipt Date: 20180417
  Transmission Date: 20180711
  Serious: Yes (Other)
  Sender: FDA-Public Use
  Company Number: AU-ACTELION-A-CH2018-168302

PATIENT
  Age: 25 Year
  Sex: Female
  Weight: 82 kg

DRUGS (2)
  1. TRACLEER [Suspect]
     Active Substance: BOSENTAN
     Indication: PULMONARY ARTERIAL HYPERTENSION
     Dosage: 125 MG, BID
     Route: 048
     Dates: start: 20110920, end: 20180106
  2. VELETRI [Suspect]
     Active Substance: EPOPROSTENOL
     Indication: PULMONARY ARTERIAL HYPERTENSION
     Dosage: UNK
     Route: 042
     Dates: start: 201411, end: 20180106

REACTIONS (4)
  - Pulmonary arterial hypertension [Unknown]
  - Disease progression [Unknown]
  - Haemoptysis [Unknown]
  - Lung transplant [Unknown]

NARRATIVE: CASE EVENT DATE: 20180106
